FAERS Safety Report 5084886-6 (Version None)
Quarter: 2006Q3

REPORT INFORMATION
  Report Type: 
  Country: None (occurrence: None)
  Receive Date: 20060821
  Receipt Date: 20060808
  Transmission Date: 20061208
  Serious: Yes (Other)
  Sender: FDA-Public Use
  Company Number: AU-NOVOPROD-256139

PATIENT
  Age: 57 Year
  Sex: Male

DRUGS (16)
  1. NOVOSEVEN [Suspect]
     Indication: OPERATIVE HAEMORRHAGE
     Dosage: 6 MG, SINGLE
     Dates: start: 20051008
  2. NOVOSEVEN [Suspect]
     Dosage: 9.6 MG, SINGLE
     Dates: start: 20051008
  3. ASPIRIN                            /00002701/ [Concomitant]
     Dosage: USED PRE-EVENT
  4. BLOOD CELLS, PACKED HUMAN [Concomitant]
     Dosage: 2 U, 24 HRS PRE RFVIIA ADMINISTRATION
  5. BLOOD CELLS, PACKED HUMAN [Concomitant]
     Dosage: 13 U, IN BETWEEN RFVIIA DOSES
  6. BLOOD CELLS, PACKED HUMAN [Concomitant]
     Dosage: 17 U, 24 HRS POST RFVIIA ADMINISTRATION
  7. FRESH FROZEN PLASMA [Concomitant]
     Dosage: 15 U, IN BETWEEN RFVIIA DOSES
  8. FRESH FROZEN PLASMA [Concomitant]
     Dosage: 8 U, 24 HRS POST RFVIIA ADMINISTRATION
  9. CRYOPRECIPITATES [Concomitant]
     Dosage: 10 U, 24 HRS POST RFVIIA ADMINISTRATION
  10. PLATELETS [Concomitant]
     Dosage: 3 U, IN BETWEEN RFVIIA DOSES
  11. PLATELETS [Concomitant]
     Dosage: 3 U, 24 HRS POST RFVIIA ADMINISTRATION
  12. GELOFUSINE                         /00203801/ [Concomitant]
     Dosage: 500 ML, IN BETWEEN RFVIIA DOSES
  13. GELOFUSINE                         /00203801/ [Concomitant]
     Dosage: 1500 ML, 24 HRS POST RFVIIA ADMINISTRATION
  14. TRASYLOL [Concomitant]
     Dosage: BEFORE FIRST RFVIIA DOSE
  15. PROTAMINE SULFATE [Concomitant]
     Dosage: IN BETWEEN RFVIIA DOSES
  16. PROTAMINE SULFATE [Concomitant]
     Dosage: AFTER FINAL RFVIIA DOSE

REACTIONS (3)
  - CEREBROVASCULAR ACCIDENT [None]
  - ISCHAEMIC HEPATITIS [None]
  - RENAL FAILURE ACUTE [None]
